FAERS Safety Report 6241956-4 (Version None)
Quarter: 2009Q2

REPORT INFORMATION
  Report Type: 
  Country: None (occurrence: None)
  Receive Date: 20090622
  Receipt Date: 20090604
  Transmission Date: 20091009
  Serious: Yes (Hospitalization)
  Sender: FDA-Public Use
  Company Number: 2008AL008245

PATIENT
  Age: 54 Year
  Sex: Female

DRUGS (1)
  1. DIGOXIN [Suspect]
     Dosage: PO
     Route: 048

REACTIONS (4)
  - ANAEMIA [None]
  - CHEST DISCOMFORT [None]
  - CHEST PAIN [None]
  - INCORRECT DOSE ADMINISTERED [None]
